FAERS Safety Report 9338494 (Version 1)
Quarter: 2013Q2

REPORT INFORMATION
  Report Type: Spontaneous
  Country: FR (occurrence: FR)
  Receive Date: 20130610
  Receipt Date: 20130610
  Transmission Date: 20140414
  Serious: Yes (Hospitalization)
  Sender: FDA-Public Use
  Company Number: FR-JNJFOC-20130601309

PATIENT
  Age: 58 Year
  Sex: Male

DRUGS (1)
  1. XARELTO [Suspect]
     Indication: HEART VALVE REPLACEMENT
     Route: 048
     Dates: start: 20130330, end: 20130422

REACTIONS (1)
  - Ischaemic stroke [Recovering/Resolving]
